FAERS Safety Report 4619475-8 (Version None)
Quarter: 2005Q2

REPORT INFORMATION
  Report Type: 
  Country: None (occurrence: None)
  Receive Date: 20050321
  Receipt Date: 20040707
  Transmission Date: 20051028
  Serious: Yes (Hospitalization)
  Sender: FDA-Public Use
  Company Number: 2004-07-0391

PATIENT
  Age: 21 Year
  Sex: Male

DRUGS (2)
  1. PEG-INTRON [Suspect]
     Indication: HEPATITIS
     Dosage: QWK SUBCUTANEOUS
     Route: 058
  2. REBETOL [Suspect]
     Indication: HEPATITIS
     Dosage: ORAL
     Route: 048

REACTIONS (3)
  - DEPRESSION [None]
  - MANIA [None]
  - SUICIDAL IDEATION [None]
